FAERS Safety Report 9633825 (Version 3)
Quarter: 2013Q4

REPORT INFORMATION
  Report Type: Spontaneous
  Country: EC (occurrence: EC)
  Receive Date: 20131021
  Receipt Date: 20131107
  Transmission Date: 20140711
  Serious: Yes (Hospitalization, Other)
  Sender: FDA-Public Use
  Company Number: EC-PFIZER INC-2013298973

PATIENT
  Age: 72 Year
  Sex: Female

DRUGS (6)
  1. LYRICA [Suspect]
     Indication: NEURALGIA
     Dosage: 75 MG, 2X/DAY
     Route: 048
     Dates: start: 2009, end: 201307
  2. LYRICA [Suspect]
     Dosage: 150 MG, 2X/DAY
     Route: 048
     Dates: start: 201307, end: 201309
  3. LYRICA [Suspect]
     Dosage: 75 MG, 2X/DAY
     Route: 048
     Dates: start: 201309
  4. TRAMADOL [Concomitant]
     Route: 048
  5. GLUCOSAMINE [Concomitant]
     Dosage: UNK
     Route: 048
  6. METHOTREXATE [Concomitant]
     Dosage: UNK
     Route: 048

REACTIONS (4)
  - Intervertebral disc protrusion [Recovered/Resolved]
  - Muscle spasms [Recovering/Resolving]
  - Drug ineffective [Recovered/Resolved]
  - Spinal pain [Recovered/Resolved]
